FAERS Safety Report 9310246 (Version 1)
Quarter: 2013Q2

REPORT INFORMATION
  Report Type: Report from Study
  Country: AR (occurrence: AR)
  Receive Date: 20130527
  Receipt Date: 20130527
  Transmission Date: 20140414
  Serious: Yes (Hospitalization)
  Sender: FDA-Public Use
  Company Number: PHHY2013AR052376

PATIENT
  Age: 74 Year
  Sex: Male

DRUGS (2)
  1. DIOVAN [Suspect]
     Indication: HYPERTENSION
     Dosage: 80 MG, DAILY
     Route: 048
  2. DIOVAN [Suspect]
     Dosage: 80 MG, DAILY
     Route: 048

REACTIONS (4)
  - Malaise [Recovering/Resolving]
  - Ulcer haemorrhage [Recovering/Resolving]
  - Haematemesis [Recovering/Resolving]
  - Cholelithiasis [Recovering/Resolving]
